FAERS Safety Report 13987503 (Version 4)
Quarter: 2017Q4

REPORT INFORMATION
  Report Type: Report from Study
  Country: BE (occurrence: BE)
  Receive Date: 20170919
  Receipt Date: 20171220
  Transmission Date: 20180321
  Serious: Yes (Hospitalization, Other)
  Sender: FDA-Public Use
  Company Number: BE-CELGENEUS-BEL-20170708647

PATIENT
  Age: 72 Year
  Sex: Male
  Weight: 78.9 kg

DRUGS (45)
  1. AG-221 [Suspect]
     Active Substance: ENASIDENIB
     Indication: GLIOMA
  2. COLECALCIFEROL [Concomitant]
     Active Substance: CHOLECALCIFEROL
     Indication: PROPHYLAXIS
     Dosage: 2400 IU (INTERNATIONAL UNIT)
     Route: 048
     Dates: end: 20170928
  3. ALLOPURINOL. [Concomitant]
     Active Substance: ALLOPURINOL
     Indication: PROPHYLAXIS
     Dosage: 100 MILLIGRAM
     Route: 048
     Dates: start: 20170712, end: 20170802
  4. ALLOPURINOL. [Concomitant]
     Active Substance: ALLOPURINOL
     Dosage: 100 MILLIGRAM
     Route: 048
     Dates: start: 20170917
  5. FLUCONAZOLE. [Concomitant]
     Active Substance: FLUCONAZOLE
     Dosage: 200 MILLIGRAM
     Route: 048
     Dates: start: 20170920, end: 20170920
  6. SODIUM BICARBONATE. [Concomitant]
     Active Substance: SODIUM BICARBONATE
     Dosage: 2 GRAM
     Route: 048
     Dates: start: 20170816
  7. STAURODORM [Concomitant]
     Indication: ANXIETY
     Dosage: 27 MILLIGRAM
     Route: 048
     Dates: start: 20170906, end: 20170917
  8. TEMESTA (LORAZEPAM) [Concomitant]
     Active Substance: LORAZEPAM
     Indication: ANXIETY
     Dosage: 1 MILLIGRAM
     Route: 048
     Dates: start: 20170918, end: 20170919
  9. DEXAMETHASONE. [Concomitant]
     Active Substance: DEXAMETHASONE
     Indication: LEUKOCYTOSIS
     Dosage: 8 MILLIGRAM
     Route: 048
     Dates: start: 20170916, end: 20170916
  10. DIFLUCAN [Concomitant]
     Active Substance: FLUCONAZOLE
     Indication: INFECTION PROPHYLAXIS
     Dosage: 200 MILLIGRAM
     Route: 048
     Dates: start: 20171006
  11. CALCIUM [Concomitant]
     Active Substance: CALCIUM
     Indication: PROPHYLAXIS
     Dosage: 1 GRAM
     Route: 048
     Dates: end: 20170912
  12. SODIUM BICARBONATE. [Concomitant]
     Active Substance: SODIUM BICARBONATE
     Indication: GASTROOESOPHAGEAL REFLUX PROPHYLAXIS
     Dosage: 3 GRAM
     Route: 048
     Dates: start: 20170802, end: 20170815
  13. EFEXOR [Concomitant]
     Active Substance: VENLAFAXINE HYDROCHLORIDE
     Indication: ANXIETY
     Dosage: 37.5 MILLIGRAM
     Route: 048
     Dates: start: 20170914
  14. DEXAMETHASONE. [Concomitant]
     Active Substance: DEXAMETHASONE
     Dosage: 20 MILLIGRAM
     Route: 048
     Dates: start: 20170917, end: 20170919
  15. RECTOGESIC [Concomitant]
     Active Substance: NITROGLYCERIN
     Indication: ANAL FISSURE
     Dosage: 1 APPLICATION
     Route: 061
     Dates: start: 20170719, end: 20170809
  16. LITICAN [Concomitant]
     Active Substance: ALIZAPRIDE HYDROCHLORIDE
     Indication: NAUSEA
     Dosage: 50 MILLIGRAM
     Route: 048
     Dates: start: 20170717
  17. HYDROXYUREA. [Concomitant]
     Active Substance: HYDROXYUREA
     Indication: LEUKOCYTOSIS
     Dosage: 500 MILLIGRAM
     Route: 048
     Dates: start: 20170823, end: 20170830
  18. LYRICA [Concomitant]
     Active Substance: PREGABALIN
     Indication: POLYNEUROPATHY
     Dosage: 75 MILLIGRAM
     Route: 048
     Dates: start: 20170915, end: 20170919
  19. LORMETAZEPAM [Concomitant]
     Active Substance: LORMETAZEPAM
     Dosage: 1 MILLIGRAM
     Route: 048
     Dates: start: 20171001, end: 20171005
  20. NIZORAL [Concomitant]
     Active Substance: KETOCONAZOLE
     Indication: SEBORRHOEIC DERMATITIS
     Route: 061
     Dates: start: 20170916
  21. FLUCONAZOLE. [Concomitant]
     Active Substance: FLUCONAZOLE
     Indication: ANTIFUNGAL PROPHYLAXIS
     Dosage: 200 MILLIGRAM
     Route: 048
     Dates: start: 20170712, end: 20170802
  22. THEALOZ DUO [Concomitant]
     Indication: DRY EYE
     Dosage: 1 DROPS
     Route: 047
     Dates: start: 20170807
  23. DENTIO MOUTHWASH [Concomitant]
     Route: 002
     Dates: start: 20170928, end: 20171006
  24. NILSTAT XYLOCAINE [Concomitant]
     Indication: PROPHYLAXIS
     Route: 002
     Dates: start: 20170913, end: 20170920
  25. BEFACT FORTE [Concomitant]
     Indication: POLYNEUROPATHY
     Dosage: 1 OTHER
     Route: 048
     Dates: start: 20170914, end: 20171005
  26. DEXAMETHASONE. [Concomitant]
     Active Substance: DEXAMETHASONE
     Dosage: 12 MILLIGRAM
     Route: 048
     Dates: start: 20170920, end: 20170920
  27. ALLOPURINOL. [Concomitant]
     Active Substance: ALLOPURINOL
     Indication: RENAL FAILURE
     Dosage: 100 MILLIGRAM
     Route: 048
     Dates: start: 20170807, end: 20170912
  28. FLUCONAZOLE. [Concomitant]
     Active Substance: FLUCONAZOLE
     Dosage: 200 MILLIGRAM
     Route: 048
     Dates: start: 20170928, end: 20171005
  29. DURATEARS [Concomitant]
     Active Substance: MINERAL OIL EMULSION\PETROLATUM
     Dosage: 1 APPLICATION
     Route: 047
     Dates: start: 20170928
  30. TRAMADOL. [Concomitant]
     Active Substance: TRAMADOL
     Indication: POLYNEUROPATHY
     Route: 041
     Dates: start: 20170914, end: 20170920
  31. LYRICA [Concomitant]
     Active Substance: PREGABALIN
     Dosage: 150 MILLIGRAM
     Route: 048
     Dates: start: 20170920, end: 20170920
  32. LYRICA [Concomitant]
     Active Substance: PREGABALIN
     Dosage: 75 MILLIGRAM
     Route: 048
     Dates: start: 20171001, end: 20171004
  33. AG-221 [Suspect]
     Active Substance: ENASIDENIB
     Indication: CHRONIC MYELOMONOCYTIC LEUKAEMIA
  34. VENLAFAXINE [Concomitant]
     Active Substance: VENLAFAXINE HYDROCHLORIDE
     Dosage: 37.5 MILLIGRAM
     Route: 048
     Dates: start: 20170708, end: 20170912
  35. HYDROXYUREA. [Concomitant]
     Active Substance: HYDROXYUREA
     Dosage: 500 MILLIGRAM
     Route: 048
     Dates: start: 20170906, end: 20170912
  36. STEOVIT [Concomitant]
     Active Substance: CALCIUM CARBONATE
     Indication: VITAMIN D DEFICIENCY
     Dosage: 880 IU (INTERNATIONAL UNIT)
     Route: 048
     Dates: start: 20170913, end: 20171004
  37. LORMETAZEPAM [Concomitant]
     Active Substance: LORMETAZEPAM
     Indication: ANXIETY
     Dosage: 1 MILLIGRAM
     Route: 048
     Dates: start: 20170916, end: 20170916
  38. HIRUDOID [Concomitant]
     Active Substance: GLYCOSAMINOGLYCANS
     Indication: CONTUSION
     Route: 061
     Dates: start: 20170919, end: 20170920
  39. AG-221 [Suspect]
     Active Substance: ENASIDENIB
     Indication: ACUTE MYELOID LEUKAEMIA
     Dosage: 100 MILLIGRAM
     Route: 048
     Dates: start: 20170705, end: 20171005
  40. AG-221 [Suspect]
     Active Substance: ENASIDENIB
     Indication: MYELODYSPLASTIC SYNDROME
  41. VENLAFAXINE [Concomitant]
     Active Substance: VENLAFAXINE HYDROCHLORIDE
     Indication: ANXIETY
     Dosage: 75 MILLIGRAM
     Route: 048
     Dates: end: 20170707
  42. DURATEARS [Concomitant]
     Active Substance: MINERAL OIL EMULSION\PETROLATUM
     Indication: DRY EYE
     Dosage: 1 APPLICATION
     Route: 047
     Dates: start: 20170807, end: 20170919
  43. DENTIO MOUTHWASH [Concomitant]
     Indication: PROPHYLAXIS
     Route: 002
     Dates: start: 20170913, end: 20170920
  44. TRADONAL ODIS [Concomitant]
     Indication: POLYNEUROPATHY
     Route: 048
     Dates: start: 20170913, end: 20170920
  45. DIFLUCAN [Concomitant]
     Active Substance: FLUCONAZOLE
     Indication: PROPHYLAXIS
     Dosage: 200 MILLIGRAM
     Route: 048
     Dates: start: 20170920, end: 20170927

REACTIONS (3)
  - Acute kidney injury [Recovered/Resolved]
  - Thrombocytopenia [Recovered/Resolved]
  - Ataxia [Recovered/Resolved]

NARRATIVE: CASE EVENT DATE: 20170712
